FAERS Safety Report 13278980 (Version 1)
Quarter: 2017Q1

REPORT INFORMATION
  Report Type: Spontaneous
  Country: CA (occurrence: CA)
  Receive Date: 20170228
  Receipt Date: 20170228
  Transmission Date: 20170428
  Serious: Yes (Other)
  Sender: FDA-Public Use
  Company Number: CA-TEVA-744834ACC

PATIENT
  Age: 74 Year
  Sex: Male
  Weight: 79.45 kg

DRUGS (2)
  1. ROSUVASTATIN. [Suspect]
     Active Substance: ROSUVASTATIN
  2. TEVA-ROSUVASTATIN [Suspect]
     Active Substance: ROSUVASTATIN
     Indication: BLOOD CHOLESTEROL
     Dosage: 5 MILLIGRAM DAILY;
     Route: 048

REACTIONS (2)
  - Penile swelling [Not Recovered/Not Resolved]
  - Penile blister [Not Recovered/Not Resolved]
